FAERS Safety Report 9695405 (Version 1)
Quarter: 2013Q4

REPORT INFORMATION
  Report Type: Spontaneous
  Country: US (occurrence: None)
  Receive Date: 20131118
  Receipt Date: 20131118
  Transmission Date: 20140711
  Serious: Yes (Hospitalization)
  Sender: FDA-Public Use
  Company Number: None

PATIENT
  Age: 58 Year
  Sex: Male
  Weight: 122.02 kg

DRUGS (2)
  1. GEMCITABINE (GEMZAR) [Suspect]
     Indication: BLADDER CANCER
     Dosage: 1200 MG/M2   CYCLE 1
     Dates: start: 20130718
  2. CISPLATIN (PLATINOL) OVER 2 DAYS [Suspect]
     Dosage: 35 MG/M2    CYCLE 2
     Dates: start: 20130808

REACTIONS (2)
  - Haemoptysis [None]
  - Chest discomfort [None]
